FAERS Safety Report 20595141 (Version 2)
Quarter: 2022Q1

REPORT INFORMATION
  Report Type: Spontaneous
  Country: CN (occurrence: CN)
  Receive Date: 20220315
  Receipt Date: 20220317
  Transmission Date: 20220423
  Serious: Yes (Hospitalization, Other)
  Sender: FDA-Public Use
  Company Number: CN-GLAXOSMITHKLINE-CN2022APC045651

PATIENT
  Age: 82 Year
  Sex: Male
  Weight: 55 kg

DRUGS (2)
  1. SERETIDE [Suspect]
     Active Substance: FLUTICASONE PROPIONATE\SALMETEROL XINAFOATE
     Indication: Asthma
     Dosage: 1 PUFF(S), BID, 50/250 UG, 60 INHALATIONS
     Route: 055
     Dates: start: 2019
  2. SALBUTAMOL SULPHATE AEROSOL [Concomitant]
     Indication: Asthma
     Dosage: UNK
     Route: 055

REACTIONS (4)
  - Cerebral thrombosis [Not Recovered/Not Resolved]
  - Dysphonia [Unknown]
  - Wrong technique in device usage process [Unknown]
  - Underdose [Unknown]

NARRATIVE: CASE EVENT DATE: 20200101
